FAERS Safety Report 5954158-3 (Version None)
Quarter: 2008Q4

REPORT INFORMATION
  Report Type: 
  Country: None (occurrence: None)
  Receive Date: 20081117
  Receipt Date: 20081106
  Transmission Date: 20090506
  Serious: Yes (Other)
  Sender: FDA-Public Use
  Company Number: US-JNJFOC-20081001062

PATIENT
  Sex: Female
  Weight: 68.95 kg

DRUGS (7)
  1. INVEGA [Suspect]
     Route: 048
  2. INVEGA [Suspect]
     Route: 048
  3. INVEGA [Suspect]
     Indication: PSYCHOTIC DISORDER
     Route: 048
  4. LEXAPRO [Concomitant]
  5. LEXAPRO [Concomitant]
  6. LEXAPRO [Concomitant]
     Indication: DEPRESSION
  7. COGENTIN [Concomitant]
     Indication: MUSCLE TWITCHING

REACTIONS (3)
  - BREAST DISCHARGE [None]
  - BREAST MASS [None]
  - PITUITARY TUMOUR [None]
